FAERS Safety Report 14163071 (Version 1)
Quarter: 2017Q4

REPORT INFORMATION
  Report Type: Spontaneous
  Country: PE (occurrence: PE)
  Receive Date: 20171107
  Receipt Date: 20171107
  Transmission Date: 20180321
  Serious: Yes (Hospitalization, Disabling)
  Sender: FDA-Public Use
  Company Number: PE-ROCHE-2016977

PATIENT

DRUGS (1)
  1. AVASTIN [Suspect]
     Active Substance: BEVACIZUMAB
     Indication: PRODUCT USED FOR UNKNOWN INDICATION
     Route: 031

REACTIONS (6)
  - Ocular hyperaemia [Unknown]
  - Headache [Unknown]
  - Off label use [Unknown]
  - Blindness [Unknown]
  - Eye disorder [Unknown]
  - Intentional product use issue [Unknown]
